FAERS Safety Report 10305195 (Version 3)
Quarter: 2014Q3

REPORT INFORMATION
  Report Type: Report from Study
  Country: DE (occurrence: DE)
  Receive Date: 20140715
  Receipt Date: 20140728
  Transmission Date: 20150326
  Serious: Yes (Death, Hospitalization)
  Sender: FDA-Public Use
  Company Number: PHHY2013DE143144

PATIENT
  Sex: Female
  Weight: 110 kg

DRUGS (8)
  1. MACROGOL [Concomitant]
     Active Substance: POLYETHYLENE GLYCOLS
     Dosage: 1 BAG DAILY
     Dates: start: 20131111
  2. LEVEMIR [Concomitant]
     Active Substance: INSULIN DETEMIR
     Dosage: 18 U, NIGHTS
     Dates: start: 19980101
  3. LIPROLOG [Concomitant]
     Active Substance: INSULIN LISPRO
     Dosage: 60 U, DAYS
     Dates: start: 19980101
  4. EXEMESTANE. [Concomitant]
     Active Substance: EXEMESTANE
     Indication: BREAST CANCER METASTATIC
     Dosage: 25 MG, QD
     Route: 048
     Dates: start: 20130528, end: 20131120
  5. BISPHOSPHONATES [Concomitant]
     Active Substance: UNSPECIFIED INGREDIENT
  6. SEVREDOL [Concomitant]
     Active Substance: MORPHINE
     Dosage: 20 MG, 6QD
     Route: 048
     Dates: start: 20131111, end: 20131202
  7. AFINITOR [Suspect]
     Active Substance: EVEROLIMUS
     Indication: BREAST CANCER METASTATIC
     Dosage: 10 MG, QD
     Route: 048
     Dates: start: 20130528, end: 20131120
  8. FENTANYL. [Concomitant]
     Active Substance: FENTANYL
     Dosage: 50 UG/HR, Q72H
     Route: 003
     Dates: start: 20131111, end: 20131202

REACTIONS (5)
  - Dyspnoea [Fatal]
  - Pain [Fatal]
  - Multi-organ failure [Fatal]
  - Anxiety [Fatal]
  - General physical condition abnormal [Unknown]

NARRATIVE: CASE EVENT DATE: 20131202
